FAERS Safety Report 15892189 (Version 1)
Quarter: 2019Q1

REPORT INFORMATION
  Report Type: Report from Study
  Country: US (occurrence: US)
  Receive Date: 20190130
  Receipt Date: 20190130
  Transmission Date: 20190417
  Serious: No
  Sender: FDA-Public Use
  Company Number: US-EXELIXIS-CABO-18014744

PATIENT
  Sex: Female

DRUGS (19)
  1. AZATHIOPRINE. [Concomitant]
     Active Substance: AZATHIOPRINE
  2. MULTIVITAMINS, COMBINATIONS [Concomitant]
     Active Substance: VITAMINS
  3. OMEGA [Concomitant]
     Active Substance: CONVALLARIA MAJALIS\CRATAEGUS LAEVIGATA LEAF\PROXYPHYLLINE
  4. CABOMETYX [Suspect]
     Active Substance: CABOZANTINIB S-MALATE
     Indication: METASTASES TO LIVER
     Dosage: 20 MG, QD
     Route: 048
     Dates: start: 20180131
  5. VICTOZA [Concomitant]
     Active Substance: LIRAGLUTIDE
  6. DILTIAZEM. [Concomitant]
     Active Substance: DILTIAZEM
  7. VESICARE [Concomitant]
     Active Substance: SOLIFENACIN SUCCINATE
  8. DIGOXIN. [Concomitant]
     Active Substance: DIGOXIN
  9. BIOTIN [Concomitant]
     Active Substance: BIOTIN
  10. CITALOPRAM [Concomitant]
     Active Substance: CITALOPRAM HYDROBROMIDE
  11. METFORMIN [Concomitant]
     Active Substance: METFORMIN HYDROCHLORIDE
  12. ELIQUIS [Concomitant]
     Active Substance: APIXABAN
  13. FARXIGA [Concomitant]
     Active Substance: DAPAGLIFLOZIN PROPANEDIOL
  14. CABOMETYX [Suspect]
     Active Substance: CABOZANTINIB S-MALATE
     Indication: CHOLANGIOCARCINOMA
     Dosage: 40 MG, QD
     Route: 048
     Dates: start: 2018
  15. XANAX [Concomitant]
     Active Substance: ALPRAZOLAM
  16. CABOMETYX [Suspect]
     Active Substance: CABOZANTINIB S-MALATE
     Indication: RENAL CANCER
     Dosage: 60 MG, QD
     Dates: start: 20170706
  17. JARDIANCE [Concomitant]
     Active Substance: EMPAGLIFLOZIN
  18. ONDANSETRON [Concomitant]
     Active Substance: ONDANSETRON
  19. VITAMIN B [Concomitant]
     Active Substance: VITAMIN B

REACTIONS (1)
  - Drug intolerance [Unknown]
